FAERS Safety Report 8742452 (Version 2)
Quarter: 2012Q4

REPORT INFORMATION
  Report Type: Spontaneous
  Country: JP (occurrence: None)
  Receive Date: 20120807
  Receipt Date: 20120820
  Transmission Date: 20130627
  Serious: Yes (Other)
  Sender: FDA-Public Use
  Company Number: DKLU1083638

PATIENT
  Sex: Male

DRUGS (9)
  1. ONFI [Suspect]
     Indication: LENNOX-GASTAUT SYNDROME
  2. VALPROIC ACID [Suspect]
     Indication: LENNOX-GASTAUT SYNDROME
  3. TOPIRAMATE [Suspect]
     Indication: LENNOX-GASTAUT SYNDROME
  4. PHENYTOIN [Suspect]
     Indication: LENNOX-GASTAUT SYNDROME
  5. CLONAZEPAM [Suspect]
     Indication: LENNOX-GASTAUT SYNDROME
  6. PHENOBARBITAL [Suspect]
     Indication: LENNOX-GASTAUT SYNDROME
  7. LAMOTRIGINE [Suspect]
     Indication: LENNOX-GASTAUT SYNDROME
  8. ETHOSUXIMIDE [Concomitant]
  9. ZONISAMIDE [Concomitant]

REACTIONS (6)
  - CONVULSION [None]
  - DRUG INEFFECTIVE [None]
  - DROP ATTACKS [None]
  - FALL [None]
  - INJURY [None]
  - DEVELOPMENTAL DELAY [None]
